FAERS Safety Report 17315193 (Version 1)
Quarter: 2020Q1

REPORT INFORMATION
  Report Type: Spontaneous
  Country: US (occurrence: US)
  Receive Date: 20200124
  Receipt Date: 20200124
  Transmission Date: 20200409
  Serious: No
  Sender: FDA-Public Use
  Company Number: US-ASTRAZENECA-2019SF92312

PATIENT
  Age: 925 Month
  Sex: Male
  Weight: 93 kg

DRUGS (1)
  1. BYDUREON BCISE [Suspect]
     Active Substance: EXENATIDE
     Indication: TYPE 2 DIABETES MELLITUS
     Route: 058
     Dates: start: 20191217

REACTIONS (3)
  - Abdominal discomfort [Unknown]
  - Frequent bowel movements [Unknown]
  - Headache [Unknown]

NARRATIVE: CASE EVENT DATE: 201912
